FAERS Safety Report 9477813 (Version 2)
Quarter: 2013Q3

REPORT INFORMATION
  Report Type: Spontaneous
  Country: US (occurrence: US)
  Receive Date: 20130827
  Receipt Date: 20130918
  Transmission Date: 20140515
  Serious: Yes (Hospitalization)
  Sender: FDA-Public Use
  Company Number: US-AMGEN-USASP2013059207

PATIENT
  Age: 80 Year
  Sex: Female
  Weight: 64.85 kg

DRUGS (11)
  1. PROLIA [Suspect]
     Indication: OSTEOPOROSIS POSTMENOPAUSAL
     Dosage: UNK
     Route: 065
     Dates: start: 20130623, end: 20130623
  2. METFORMIN [Concomitant]
  3. LISINOPRIL [Concomitant]
  4. PRAVASTATIN [Concomitant]
  5. BABY ASPIRIN [Concomitant]
  6. POTASSIUM [Concomitant]
  7. LASIX                              /00032601/ [Concomitant]
  8. PERCOCET                           /00446701/ [Concomitant]
  9. ONE A DAY                          /02262701/ [Concomitant]
  10. CRANBERRY                          /01512301/ [Concomitant]
  11. CALCIUM WITH VITAMIN D             /00944201/ [Concomitant]

REACTIONS (13)
  - Thrombosis [Recovering/Resolving]
  - Gait disturbance [Unknown]
  - Cardiac enzymes increased [Unknown]
  - Aphagia [Not Recovered/Not Resolved]
  - Retching [Not Recovered/Not Resolved]
  - Nausea [Recovering/Resolving]
  - Vomiting [Recovering/Resolving]
  - Dizziness [Not Recovered/Not Resolved]
  - Malaise [Unknown]
  - Blood potassium decreased [Unknown]
  - Deep vein thrombosis [Not Recovered/Not Resolved]
  - Muscle tightness [Recovered/Resolved]
  - Hypocalcaemia [Recovered/Resolved]
